FAERS Safety Report 5030864-2 (Version None)
Quarter: 2006Q2

REPORT INFORMATION
  Report Type: 
  Country: None (occurrence: None)
  Receive Date: 20060621
  Receipt Date: 20060512
  Transmission Date: 20061013
  Serious: Yes (Hospitalization)
  Sender: FDA-Public Use
  Company Number: 2006UW09555

PATIENT
  Age: 46 Year
  Sex: Female

DRUGS (2)
  1. CRESTOR [Suspect]
     Route: 048
     Dates: start: 20060425, end: 20060427
  2. CRESTOR [Suspect]
     Route: 048
     Dates: start: 20060429, end: 20060430

REACTIONS (6)
  - CHEST PAIN [None]
  - COLD SWEAT [None]
  - DYSPNOEA [None]
  - HYPERHIDROSIS [None]
  - LIPASE INCREASED [None]
  - VOMITING [None]
